FAERS Safety Report 18640530 (Version 1)
Quarter: 2020Q4

REPORT INFORMATION
  Report Type: Spontaneous
  Country: US (occurrence: US)
  Receive Date: 20201221
  Receipt Date: 20201221
  Transmission Date: 20210114
  Serious: Yes (Other)
  Sender: FDA-Public Use
  Company Number: US-JNJFOC-20201228729

PATIENT
  Age: 69 Year
  Sex: Female
  Weight: 72.6 kg

DRUGS (1)
  1. TYLENOL EXTRA STRENGTH [Suspect]
     Active Substance: ACETAMINOPHEN
     Indication: PRODUCT USED FOR UNKNOWN INDICATION
     Dosage: 10, 900 MG AT 2345?3, 600 MG AT 0132 (4 HOUR)?7, 300 MG AT 0547 (WAS DONE AT 1500)?APPROX 500 MG #20
     Route: 048

REACTIONS (5)
  - Nausea [Unknown]
  - Vomiting [Unknown]
  - Alanine aminotransferase increased [Unknown]
  - Intentional overdose [Unknown]
  - Aspartate aminotransferase increased [Unknown]
